FAERS Safety Report 21327359 (Version 1)
Quarter: 2022Q3

REPORT INFORMATION
  Report Type: Report from Study
  Country: JP (occurrence: JP)
  Receive Date: 20220913
  Receipt Date: 20220913
  Transmission Date: 20221027
  Serious: Yes (Other)
  Sender: FDA-Public Use
  Company Number: JP-JNJFOC-20220924282

PATIENT

DRUGS (1)
  1. ZYTIGA [Suspect]
     Active Substance: ABIRATERONE ACETATE
     Indication: Prostate cancer metastatic
     Dosage: DOSE UNKNOWN
     Route: 048

REACTIONS (8)
  - Hepatic function abnormal [Unknown]
  - Thrombocytopenia [Unknown]
  - Rhabdomyolysis [Unknown]
  - Hypokalaemia [Unknown]
  - Oedema [Unknown]
  - Hyperglycaemia [Unknown]
  - Drug eruption [Unknown]
  - Vertigo [Unknown]
